FAERS Safety Report 11091402 (Version 4)
Quarter: 2017Q3

REPORT INFORMATION
  Report Type: Report from Study
  Country: US (occurrence: US)
  Receive Date: 20150505
  Receipt Date: 20170810
  Transmission Date: 20171127
  Serious: Yes (Hospitalization, Other)
  Sender: FDA-Public Use
  Company Number: US-PURDUE PHARMA-USA-2015-0123213

PATIENT
  Age: 56 Year
  Sex: Female

DRUGS (5)
  1. OXYCODONE HYDROCHLORIDE. [Suspect]
     Active Substance: OXYCODONE HYDROCHLORIDE
     Indication: FIBROMYALGIA
     Dosage: (2 X 80 MG) 160 MG, Q12H
     Route: 048
  2. NORCO [Suspect]
     Active Substance: ACETAMINOPHEN\HYDROCODONE BITARTRATE
     Indication: FIBROMYALGIA
     Dosage: 80 MG, Q12H
     Route: 048
     Dates: start: 20150703
  3. OXYCODONE HYDROCHLORIDE. [Suspect]
     Active Substance: OXYCODONE HYDROCHLORIDE
     Indication: OSTEOARTHRITIS
     Dosage: 80 MG, Q12H
     Route: 048
  4. NORCO [Suspect]
     Active Substance: ACETAMINOPHEN\HYDROCODONE BITARTRATE
     Indication: ARTHROPATHY
     Dosage: UNK
     Route: 048
     Dates: start: 2009
  5. OXYCODONE HYDROCHLORIDE. [Suspect]
     Active Substance: OXYCODONE HYDROCHLORIDE
     Dosage: 480 MG, Q12H
     Route: 048
     Dates: start: 200904

REACTIONS (10)
  - Hepatitis C [Unknown]
  - Fibromyalgia [Unknown]
  - Arthropod bite [Unknown]
  - Limb injury [Unknown]
  - Pain [Unknown]
  - Anaemia [Unknown]
  - Disturbance in attention [Unknown]
  - Dysarthria [Unknown]
  - Confusional state [Unknown]
  - Gallbladder disorder [Recovered/Resolved]

NARRATIVE: CASE EVENT DATE: 201707
